FAERS Safety Report 7265917-1 (Version None)
Quarter: 2011Q1

REPORT INFORMATION
  Report Type: 
  Country: None (occurrence: None)
  Receive Date: 20110131
  Receipt Date: 20110105
  Transmission Date: 20110831
  Serious: Yes (Other)
  Sender: FDA-Public Use
  Company Number: B0696674A

PATIENT
  Age: 68 Year
  Sex: Female

DRUGS (9)
  1. VELCADE [Suspect]
     Indication: MULTIPLE MYELOMA
     Dosage: 1.7MG SEE DOSAGE TEXT
     Route: 065
     Dates: start: 20100201, end: 20100701
  2. ACETYLSALICYLIC ACID SRT [Concomitant]
     Indication: THROMBOSIS PROPHYLAXIS
     Route: 065
  3. ACYCLOVIR [Concomitant]
     Indication: PROPHYLAXIS
     Route: 065
  4. MELPHALAN [Suspect]
     Indication: MULTIPLE MYELOMA
     Dosage: 9MG PER DAY
     Route: 065
     Dates: start: 20100201, end: 20100701
  5. TEMAZEPAM [Concomitant]
     Route: 065
  6. CONCOR [Concomitant]
     Indication: HYPERTENSION
     Route: 065
  7. SULFAMETHOXAZOLE AND TRIMETHOPRIM DOUBLE STRENGTH [Suspect]
     Route: 065
  8. DEXAMETHASONE [Suspect]
     Dosage: 20MG SEE DOSAGE TEXT
     Route: 065
     Dates: start: 20100201, end: 20100701
  9. REVLIMID [Suspect]
     Indication: MULTIPLE MYELOMA
     Dosage: 15MG SEE DOSAGE TEXT
     Route: 048
     Dates: start: 20100201, end: 20100701

REACTIONS (5)
  - NEUTROPENIA [None]
  - DRUG INEFFECTIVE [None]
  - NO THERAPEUTIC RESPONSE [None]
  - PRODUCT QUALITY ISSUE [None]
  - MULTIPLE MYELOMA [None]
